FAERS Safety Report 7702245-1 (Version None)
Quarter: 2011Q3

REPORT INFORMATION
  Report Type: 
  Country: None (occurrence: None)
  Receive Date: 20110822
  Receipt Date: 20110816
  Transmission Date: 20111222
  Serious: Yes (Hospitalization)
  Sender: FDA-Public Use
  Company Number: FR-PFIZER INC-2011049014

PATIENT
  Age: 26 Year
  Sex: Male
  Weight: 90 kg

DRUGS (2)
  1. VARENICLINE TARTRATE [Suspect]
     Dosage: UNK, 2 TABLETS DAILY
     Dates: start: 20110217, end: 20110220
  2. VARENICLINE TARTRATE [Suspect]
     Indication: SMOKING CESSATION THERAPY
     Dosage: UNK
     Dates: start: 20110202, end: 20110216

REACTIONS (4)
  - INSOMNIA [None]
  - DELIRIUM [None]
  - DISSOCIATION [None]
  - OBSESSIVE THOUGHTS [None]
